FAERS Safety Report 18665455 (Version 2)
Quarter: 2020Q4

REPORT INFORMATION
  Report Type: Other
  Country: US (occurrence: US)
  Receive Date: 20201225
  Receipt Date: 20201231
  Transmission Date: 20210114
  Serious: Yes (Hospitalization)
  Sender: FDA-Public Use
  Company Number: US-ROCHE-2739815

PATIENT
  Age: 50 Year
  Sex: Male

DRUGS (5)
  1. PREDNISONE. [Concomitant]
     Active Substance: PREDNISONE
  2. METHYLPREDNISOLONE. [Concomitant]
     Active Substance: METHYLPREDNISOLONE
     Route: 042
  3. TACROLIMUS. [Concomitant]
     Active Substance: TACROLIMUS
     Indication: IMMUNOSUPPRESSION
     Dosage: 3 MG  ONCE IN THE MORNING AND 2 MG IN THE EVENING
     Route: 065
  4. CYCLOSPORINE. [Concomitant]
     Active Substance: CYCLOSPORINE
  5. MYCOPHENOLATE MOFETIL. [Suspect]
     Active Substance: MYCOPHENOLATE MOFETIL
     Indication: IMMUNOSUPPRESSION
     Route: 065

REACTIONS (4)
  - Enterocolitis [Recovering/Resolving]
  - Ileal ulcer [Recovering/Resolving]
  - Shock haemorrhagic [Recovering/Resolving]
  - Peritonitis [Recovering/Resolving]
